FAERS Safety Report 4737317-7 (Version None)
Quarter: 2005Q3

REPORT INFORMATION
  Report Type: 
  Country: None (occurrence: None)
  Receive Date: 20050808
  Receipt Date: 20050729
  Transmission Date: 20060218
  Serious: Yes (Other)
  Sender: FDA-Public Use
  Company Number: PHFR2005GB02633

PATIENT
  Age: 23 Year
  Sex: Male

DRUGS (1)
  1. VOLTAROL [Suspect]
     Indication: ARTHRALGIA
     Dosage: 50 MG, TID
     Route: 048
     Dates: start: 20050520, end: 20050522

REACTIONS (4)
  - BLISTER [None]
  - DERMATITIS BULLOUS [None]
  - PAIN IN EXTREMITY [None]
  - PARAESTHESIA [None]
